FAERS Safety Report 6862192-4 (Version None)
Quarter: 2010Q3

REPORT INFORMATION
  Report Type: 
  Country: None (occurrence: None)
  Receive Date: 20100719
  Receipt Date: 20100706
  Transmission Date: 20110219
  Serious: Yes (Hospitalization)
  Sender: FDA-Public Use
  Company Number: UTC-001232

PATIENT
  Age: 33 Year
  Sex: Female
  Weight: 84 kg

DRUGS (2)
  1. REMODULIN [Suspect]
     Dosage: 38.88 UG/KG (0.027 UG/KG, 1 IN 1 MIN), INTRAVENOUS
     Route: 042
     Dates: start: 20100204
  2. FUROSEMIDE [Concomitant]

REACTIONS (3)
  - DEVICE RELATED INFECTION [None]
  - KIDNEY INFECTION [None]
  - SYNCOPE [None]
